FAERS Safety Report 8387866-8 (Version None)
Quarter: 2012Q2

REPORT INFORMATION
  Report Type: 
  Country: None (occurrence: None)
  Receive Date: 20120525
  Receipt Date: 20120519
  Transmission Date: 20120825
  Serious: Yes (Hospitalization)
  Sender: FDA-Public Use
  Company Number: US-US-EMD SERONO, INC.-7134338

PATIENT
  Sex: Male
  Weight: 68 kg

DRUGS (5)
  1. AMITIZA [Concomitant]
     Indication: CONSTIPATION
  2. CARBAMAZEPINE [Concomitant]
     Indication: PRODUCT USED FOR UNKNOWN INDICATION
  3. CETIRIZINE [Concomitant]
     Indication: HYPERSENSITIVITY
  4. MIRALAX [Concomitant]
     Indication: CONSTIPATION
  5. REBIF [Suspect]
     Indication: PRODUCT USED FOR UNKNOWN INDICATION
     Dates: start: 20110307

REACTIONS (3)
  - ABNORMAL BEHAVIOUR [None]
  - JC VIRUS TEST POSITIVE [None]
  - INJECTION SITE HAEMATOMA [None]
